FAERS Safety Report 5593975-9 (Version None)
Quarter: 2008Q1

REPORT INFORMATION
  Report Type: 
  Country: None (occurrence: None)
  Receive Date: 20080114
  Receipt Date: 20071228
  Transmission Date: 20080703
  Serious: Yes (Other)
  Sender: FDA-Public Use
  Company Number: 2005JP000377

PATIENT
  Age: 44 Year
  Sex: Male

DRUGS (6)
  1. TACROLIMUS [Suspect]
     Indication: LUNG TRANSPLANT
     Dosage: 6 MG, ORAL; ORAL; ORAL
     Route: 048
     Dates: start: 20030622, end: 20030814
  2. TACROLIMUS [Suspect]
     Indication: LUNG TRANSPLANT
     Dosage: 6 MG, ORAL; ORAL; ORAL
     Route: 048
     Dates: start: 20030815, end: 20031113
  3. TACROLIMUS [Suspect]
     Indication: LUNG TRANSPLANT
     Dosage: 6 MG, ORAL; ORAL; ORAL
     Route: 048
     Dates: start: 20031114
  4. CELLCEPT [Suspect]
  5. ZOVIRAX [Concomitant]
  6. CHOLEBINE (COLESTILAN) [Concomitant]

REACTIONS (1)
  - CYTOMEGALOVIRUS CHORIORETINITIS [None]
